FAERS Safety Report 7276403-7 (Version None)
Quarter: 2011Q1

REPORT INFORMATION
  Report Type: 
  Country: None (occurrence: None)
  Receive Date: 20110204
  Receipt Date: 20110128
  Transmission Date: 20110831
  Serious: Yes (Hospitalization)
  Sender: FDA-Public Use
  Company Number: JP-PFIZER INC-JP-WYE-H16563210

PATIENT
  Age: 36 Year
  Sex: Female
  Weight: 48.98 kg

DRUGS (19)
  1. LOXONIN [Concomitant]
     Dosage: UNK
     Route: 048
     Dates: start: 20050608
  2. RHEUMATREX [Suspect]
     Dosage: 6-8 MG PER WEEK
     Route: 048
     Dates: start: 20020218, end: 20100720
  3. HYPEN [Suspect]
     Dosage: UNSPECIFIED
     Route: 065
  4. TAZOCIN [Suspect]
     Indication: PYELONEPHRITIS ACUTE
     Dosage: 4.5 G, 3X/DAY
     Route: 042
     Dates: start: 20100701, end: 20100723
  5. GASTER [Concomitant]
     Dosage: UNK
     Route: 048
     Dates: start: 20020410
  6. POLYCARBOPHIL CALCIUM [Concomitant]
     Dosage: UNK
     Route: 048
     Dates: start: 20060830
  7. MUCOSTA [Concomitant]
     Dosage: UNK
     Route: 048
     Dates: start: 20040407
  8. ETANERCEPT [Suspect]
     Indication: RHEUMATOID ARTHRITIS
     Dosage: 25.0 MG, 1X/WK
     Route: 058
     Dates: start: 20080807, end: 20100720
  9. RHEUMATREX [Suspect]
     Dosage: 4 MG, 1X/WK
     Route: 048
     Dates: start: 20100811
  10. LENDORMIN [Concomitant]
     Dosage: UNK
     Route: 048
     Dates: start: 20040407
  11. VOLTAREN [Concomitant]
     Dosage: UNK
     Route: 048
     Dates: start: 20040407
  12. DEPAS [Concomitant]
     Dosage: UNK
     Route: 048
     Dates: start: 20060719
  13. FOLIAMIN [Concomitant]
     Dosage: UNK
     Route: 048
     Dates: start: 20070228
  14. PRIMPERAN TAB [Concomitant]
     Dosage: UNK
     Route: 048
     Dates: start: 20060913
  15. PREDNISOLONE [Suspect]
     Dosage: 1-5 MG PER DAY
     Route: 048
     Dates: start: 20020218
  16. EURODIN [Concomitant]
     Dosage: UNK
     Route: 048
     Dates: start: 20040407
  17. GASMOTIN [Concomitant]
     Dosage: UNK
     Route: 048
     Dates: start: 20051207
  18. SALAGEN [Concomitant]
     Dosage: UNK
     Route: 048
     Dates: start: 20071217
  19. ETANERCEPT [Suspect]
     Dosage: 25.0 MG, 1X/WK
     Route: 058
     Dates: start: 20100825

REACTIONS (2)
  - PYELONEPHRITIS [None]
  - DRUG INEFFECTIVE [None]
